FAERS Safety Report 4790444-0 (Version None)
Quarter: 2005Q4

REPORT INFORMATION
  Report Type: 
  Country: None (occurrence: None)
  Receive Date: 20051005
  Receipt Date: 20050919
  Transmission Date: 20060501
  Serious: Yes (Hospitalization, Other)
  Sender: FDA-Public Use
  Company Number: 8012029

PATIENT
  Age: 39 Year
  Sex: Male

DRUGS (3)
  1. LORTAB [Suspect]
     Dosage: 12 DF / D PO
     Route: 048
  2. CARISOPRODOL [Suspect]
     Dosage: 350 MG /D PO
     Route: 048
  3. METHADONE [Concomitant]

REACTIONS (4)
  - DEPRESSED LEVEL OF CONSCIOUSNESS [None]
  - MULTIPLE DRUG OVERDOSE [None]
  - NAUSEA [None]
  - VOMITING [None]
